FAERS Safety Report 16622125 (Version 1)
Quarter: 2019Q3

REPORT INFORMATION
  Report Type: Spontaneous
  Country: BE (occurrence: BE)
  Receive Date: 20190723
  Receipt Date: 20190723
  Transmission Date: 20191004
  Serious: Yes (Other)
  Sender: FDA-Public Use
  Company Number: BE-BAYER-2019-135087

PATIENT
  Age: 51 Year
  Sex: Male

DRUGS (4)
  1. SORAFENIB (RAF KINASE INHIBITOR) [Suspect]
     Active Substance: SORAFENIB
     Indication: ADENOID CYSTIC CARCINOMA
     Dosage: 400 MG, QD
  2. SORAFENIB (RAF KINASE INHIBITOR) [Suspect]
     Active Substance: SORAFENIB
     Indication: ADENOID CYSTIC CARCINOMA
     Dosage: 800 MG, QD
  3. SORAFENIB (RAF KINASE INHIBITOR) [Suspect]
     Active Substance: SORAFENIB
     Indication: ADENOID CYSTIC CARCINOMA
     Dosage: 400 MG, QD
  4. SORAFENIB (RAF KINASE INHIBITOR) [Suspect]
     Active Substance: SORAFENIB
     Indication: ADENOID CYSTIC CARCINOMA
     Dosage: 200 MG, QD

REACTIONS (8)
  - Adenoid cystic carcinoma [None]
  - Palmar-plantar erythrodysaesthesia syndrome [None]
  - Product use in unapproved indication [None]
  - Vomiting [None]
  - Off label use [None]
  - Radiation necrosis [None]
  - Diarrhoea [None]
  - Fatigue [None]
